FAERS Safety Report 5731105-0 (Version None)
Quarter: 2008Q2

REPORT INFORMATION
  Report Type: 
  Country: None (occurrence: None)
  Receive Date: 20080505
  Receipt Date: 20080428
  Transmission Date: 20081010
  Serious: Yes (Other)
  Sender: FDA-Public Use
  Company Number: 2007SP024701

PATIENT
  Age: 25 Year
  Sex: Female
  Weight: 57.6068 kg

DRUGS (4)
  1. DR. SCHOLL'S LIQUID CORN/CALLUS REMOVER (17 PCT) [Suspect]
     Indication: HYPERKERATOSIS
     Dosage: 1 GTT;BID;TOP
     Route: 061
     Dates: start: 20071110, end: 20071114
  2. EPSOM SALT [Suspect]
     Indication: DRUG USE FOR UNKNOWN INDICATION
  3. ALCOHOL [Suspect]
     Indication: HYPERKERATOSIS
  4. ORTHO TRI-CYCLEN [Concomitant]

REACTIONS (5)
  - ABSCESS LIMB [None]
  - BETA HAEMOLYTIC STREPTOCOCCAL INFECTION [None]
  - CELLULITIS [None]
  - INSOMNIA [None]
  - SKIN ULCER [None]
